FAERS Safety Report 9362872 (Version 1)
Quarter: 2013Q2

REPORT INFORMATION
  Report Type: Spontaneous
  Country: US (occurrence: None)
  Receive Date: 20130621
  Receipt Date: 20130621
  Transmission Date: 20140414
  Serious: No
  Sender: FDA-Public Use
  Company Number: None

PATIENT
  Age: 37 Year
  Sex: Female

DRUGS (1)
  1. GAMUNEX-C [Suspect]
     Indication: TURNER^S SYNDROME
     Route: 042
     Dates: start: 20130604, end: 20130606

REACTIONS (2)
  - Headache [None]
  - Tremor [None]
